FAERS Safety Report 20730210 (Version 1)
Quarter: 2022Q2

REPORT INFORMATION
  Report Type: Spontaneous
  Country: FR (occurrence: FR)
  Receive Date: 20220420
  Receipt Date: 20220420
  Transmission Date: 20220721
  Serious: Yes (Other)
  Sender: FDA-Public Use
  Company Number: None

PATIENT
  Age: 56 Year
  Sex: Female

DRUGS (3)
  1. CLINDAMYCIN HYDROCHLORIDE [Suspect]
     Active Substance: CLINDAMYCIN HYDROCHLORIDE
     Indication: Brain abscess
     Dosage: 600 MG, 3X/DAY
     Dates: start: 20210708, end: 20210731
  2. CEFOTAXIME [Suspect]
     Active Substance: CEFOTAXIME SODIUM
     Indication: Brain abscess
     Dosage: 3 G, DAILY (FREQ:24 H)
     Route: 042
     Dates: start: 20210630, end: 20210731
  3. KEPPRA [Suspect]
     Active Substance: LEVETIRACETAM
     Indication: Epileptic encephalopathy
     Dosage: 250 MG, 1X/DAY
     Dates: start: 20210707, end: 20210730

REACTIONS (4)
  - Hepatic cytolysis [Recovered/Resolved]
  - Rash maculo-papular [Recovered/Resolved]
  - Pyrexia [Recovered/Resolved]
  - Off label use [Unknown]

NARRATIVE: CASE EVENT DATE: 20210708
